FAERS Safety Report 4349656-2 (Version None)
Quarter: 2004Q2

REPORT INFORMATION
  Report Type: 
  Country: None (occurrence: None)
  Receive Date: 20040426
  Receipt Date: 20030321
  Transmission Date: 20050107
  Serious: Yes (Hospitalization, Other)
  Sender: FDA-Public Use
  Company Number: 2003012569

PATIENT
  Age: 39 Year
  Sex: Male
  Weight: 74.8435 kg

DRUGS (5)
  1. ZITHROMAX [Suspect]
     Indication: ILL-DEFINED DISORDER
     Dates: start: 20020101
  2. CLARITHROMYCIN [Suspect]
     Indication: SINUSITIS
     Dosage: ORAL
     Route: 048
     Dates: start: 20030301
  3. SALMETEROL XINAFOATE (SALMETEROL XINAFOATE) [Concomitant]
  4. FLUTICASONE PROPIONATE [Concomitant]
  5. LORATADINE [Concomitant]

REACTIONS (2)
  - PANCREATITIS [None]
  - SINUSITIS [None]
